FAERS Safety Report 5680975-3 (Version None)
Quarter: 2008Q1

REPORT INFORMATION
  Report Type: 
  Country: None (occurrence: None)
  Receive Date: 20080326
  Receipt Date: 20080314
  Transmission Date: 20080703
  Serious: Yes (Other)
  Sender: FDA-Public Use
  Company Number: JP-PFIZER INC-2008024474

PATIENT
  Age: 60 Year
  Sex: Male

DRUGS (4)
  1. ZYVOX [Suspect]
     Indication: STAPHYLOCOCCAL SEPSIS
     Dosage: DAILY DOSE:1200MG
     Route: 042
     Dates: start: 20080201, end: 20080311
  2. MINOMYCIN [Concomitant]
     Route: 042
  3. VANCOMYCIN [Concomitant]
  4. TARGOCID [Concomitant]

REACTIONS (2)
  - ELECTROCARDIOGRAM QT PROLONGED [None]
  - PLATELET COUNT DECREASED [None]
